FAERS Safety Report 6865260-6 (Version None)
Quarter: 2010Q3

REPORT INFORMATION
  Report Type: 
  Country: None (occurrence: None)
  Receive Date: 20100721
  Receipt Date: 20080417
  Transmission Date: 20110219
  Serious: No
  Sender: FDA-Public Use
  Company Number: US-PFIZER INC-2008035752

PATIENT
  Age: 55 Year
  Sex: Female
  Weight: 86.4 kg

DRUGS (5)
  1. CHANTIX [Suspect]
     Indication: SMOKING CESSATION THERAPY
     Route: 048
     Dates: start: 20080330
  2. METFORMIN [Concomitant]
  3. INSULIN [Concomitant]
  4. LIPITOR [Concomitant]
  5. ACETYLSALICYLIC ACID [Concomitant]

REACTIONS (2)
  - ABNORMAL DREAMS [None]
  - NAUSEA [None]
